FAERS Safety Report 5335487-3 (Version None)
Quarter: 2007Q2

REPORT INFORMATION
  Report Type: 
  Country: None (occurrence: None)
  Receive Date: 20070322
  Receipt Date: 20061221
  Transmission Date: 20071010
  Serious: No
  Sender: FDA-Public Use
  Company Number: 2007US000023

PATIENT
  Age: 75 Year
  Sex: Female

DRUGS (5)
  1. VESICARE [Suspect]
     Indication: URINARY INCONTINENCE
     Dosage: 5 MG ORAL
     Route: 048
     Dates: start: 20061205
  2. HYDROCODONE                 (HYDROCODONE) [Concomitant]
  3. ZOLOFT [Concomitant]
  4. ZETIA [Concomitant]
  5. PREDNISONE TAB [Concomitant]

REACTIONS (2)
  - DYSURIA [None]
  - MICTURITION URGENCY [None]
